FAERS Safety Report 24662981 (Version 1)
Quarter: 2024Q4

REPORT INFORMATION
  Report Type: Spontaneous
  Country: IT (occurrence: IT)
  Receive Date: 20241126
  Receipt Date: 20241126
  Transmission Date: 20250115
  Serious: Yes (Hospitalization, Other)
  Sender: BOEHRINGER INGELHEIM
  Company Number: IT-BoehringerIngelheim-2024-BI-063703

PATIENT
  Age: 86 Year
  Sex: Female

DRUGS (5)
  1. DABIGATRAN [Suspect]
     Active Substance: DABIGATRAN
     Indication: Product used for unknown indication
  2. APIXABAN [Suspect]
     Active Substance: APIXABAN
     Indication: Venous thrombosis
  3. BISOPROLOL [Concomitant]
     Active Substance: BISOPROLOL
     Indication: Product used for unknown indication
  4. AMILORIDE [Concomitant]
     Active Substance: AMILORIDE
     Indication: Product used for unknown indication
  5. HYDROCHLOROTHIAZIDE [Concomitant]
     Active Substance: HYDROCHLOROTHIAZIDE
     Indication: Product used for unknown indication

REACTIONS (8)
  - Coagulopathy [Recovered/Resolved]
  - Intentional self-injury [Unknown]
  - Intentional product misuse [Unknown]
  - Fall [Unknown]
  - Wound [Recovered/Resolved]
  - Haematoma [Recovered/Resolved]
  - Haematoma muscle [Recovered/Resolved]
  - Tendon rupture [Recovered/Resolved]
